FAERS Safety Report 18998859 (Version 3)
Quarter: 2021Q3

REPORT INFORMATION
  Report Type: Report from Study
  Country: CA (occurrence: CA)
  Receive Date: 20210311
  Receipt Date: 20210806
  Transmission Date: 20211014
  Serious: Yes (Other)
  Sender: FDA-Public Use
  Company Number: CA-JNJFOC-20210320427

PATIENT
  Age: 79 Year
  Sex: Male

DRUGS (1)
  1. SIMPONI [Suspect]
     Active Substance: GOLIMUMAB
     Indication: RHEUMATOID ARTHRITIS
     Route: 058
     Dates: start: 20200805, end: 20210311

REACTIONS (6)
  - Respiratory tract infection [Unknown]
  - Adverse drug reaction [Unknown]
  - Product use issue [Unknown]
  - Dysuria [Unknown]
  - Drug intolerance [Unknown]
  - Off label use [Unknown]
